FAERS Safety Report 5299618-6 (Version None)
Quarter: 2007Q2

REPORT INFORMATION
  Report Type: 
  Country: None (occurrence: None)
  Receive Date: 20070417
  Receipt Date: 20070413
  Transmission Date: 20071010
  Serious: Yes (Hospitalization)
  Sender: FDA-Public Use
  Company Number: US-BOEHRINGER INGELHEIM PHARMACEUTICALS, INC.-2007-BP-04588BP

PATIENT
  Sex: Female

DRUGS (4)
  1. SPIRIVA [Suspect]
     Route: 055
     Dates: start: 20060101
  2. XOPENEX [Concomitant]
  3. MAXAIR [Concomitant]
  4. MUCINEX [Concomitant]

REACTIONS (1)
  - LUNG INFECTION [None]
